FAERS Safety Report 13555675 (Version 3)
Quarter: 2017Q2

REPORT INFORMATION
  Report Type: Spontaneous
  Country: DE (occurrence: DE)
  Receive Date: 20170517
  Receipt Date: 20170612
  Transmission Date: 20170830
  Serious: Yes (Other)
  Sender: FDA-Public Use
  Company Number: DE-GILEAD-2017-0272575

PATIENT
  Age: 45 Year
  Sex: Male

DRUGS (1)
  1. GENVOYA [Suspect]
     Active Substance: COBICISTAT\ELVITEGRAVIR\EMTRICITABINE\TENOFOVIR ALAFENAMIDE FUMARATE
     Indication: HIV INFECTION
     Dosage: UNK
     Route: 065
     Dates: start: 201601

REACTIONS (1)
  - Blood HIV RNA increased [Recovered/Resolved]

NARRATIVE: CASE EVENT DATE: 201605
